FAERS Safety Report 11506623 (Version 1)
Quarter: 2015Q3

REPORT INFORMATION
  Report Type: Spontaneous
  Country: US (occurrence: None)
  Receive Date: 20150914
  Receipt Date: 20150914
  Transmission Date: 20151125
  Serious: Yes (Other)
  Sender: FDA-Public Use
  Company Number: None

PATIENT
  Age: 54 Year
  Sex: Female
  Weight: 68.95 kg

DRUGS (2)
  1. FARXIGA [Suspect]
     Active Substance: DAPAGLIFLOZIN PROPANEDIOL
     Dosage: 1 PILL ONCE DAILY
  2. METPHORMIN [Concomitant]

REACTIONS (2)
  - Palpitations [None]
  - Panic attack [None]

NARRATIVE: CASE EVENT DATE: 20150719
